FAERS Safety Report 7685618-5 (Version None)
Quarter: 2011Q3

REPORT INFORMATION
  Report Type: 
  Country: None (occurrence: None)
  Receive Date: 20110816
  Receipt Date: 20110804
  Transmission Date: 20111222
  Serious: Yes (Hospitalization, Other)
  Sender: FDA-Public Use
  Company Number: JP-AMGEN-US249548

PATIENT
  Age: 86 Year
  Sex: Female
  Weight: 39 kg

DRUGS (18)
  1. ISONIAZID [Suspect]
     Dosage: 200 MG, 1X/DAY
     Route: 048
     Dates: start: 20070901, end: 20070928
  2. FLAVITAN [Concomitant]
     Dosage: UNK UNK, UNK
     Route: 065
  3. CYTOTEC [Concomitant]
     Dosage: UNK
     Route: 065
  4. LENDORMIN [Concomitant]
     Dosage: UNK UNK, QD
     Route: 048
  5. BIOFERMIN [Concomitant]
     Dosage: UNK
     Route: 048
  6. ENBREL [Suspect]
     Indication: RHEUMATOID ARTHRITIS
     Dosage: 25 MG, 1X/WK
     Route: 058
     Dates: start: 20070825, end: 20070928
  7. WASSER V GRAN. [Concomitant]
     Dosage: UNK
     Route: 048
  8. LANSOPRAZOLE [Concomitant]
     Dosage: UNK
     Route: 048
  9. KETOPROFEN [Concomitant]
     Dosage: UNK UNK, UNK
     Route: 065
  10. ONE-ALPHA [Concomitant]
     Dosage: UNK
     Route: 048
  11. INDOMETHACIN [Concomitant]
     Dosage: UNK
  12. ISONIAZID [Suspect]
     Indication: ANTIBIOTIC PROPHYLAXIS
     Dosage: 100 MG, 1X/DAY
     Route: 048
     Dates: start: 20070701, end: 20070831
  13. CEPHADOL [Concomitant]
     Dosage: UNK
     Route: 048
  14. NORVASC [Concomitant]
     Dosage: UNK
     Route: 048
  15. VOLTAREN [Concomitant]
     Dosage: UNK
     Route: 065
  16. ENBREL [Suspect]
     Dosage: 25 MG, WEEKLY
     Dates: start: 20080223, end: 20080801
  17. DIOVAN [Concomitant]
     Dosage: UNK
     Route: 048
  18. ASPIRIN [Concomitant]
     Dosage: UNK
     Route: 048
     Dates: end: 20070101

REACTIONS (4)
  - LIVER DISORDER [None]
  - DEAFNESS [None]
  - BRONCHITIS [None]
  - INTERSTITIAL LUNG DISEASE [None]
